FAERS Safety Report 6738348-8 (Version None)
Quarter: 2010Q2

REPORT INFORMATION
  Report Type: 
  Country: None (occurrence: None)
  Receive Date: 20100520
  Receipt Date: 20100429
  Transmission Date: 20101027
  Serious: Yes (Hospitalization, Other)
  Sender: FDA-Public Use
  Company Number: 7002565

PATIENT
  Age: 53 Year
  Sex: Female

DRUGS (13)
  1. REBIF [Suspect]
     Indication: RELAPSING-REMITTING MULTIPLE SCLEROSIS
     Dosage: 44 MCG, 3 IN 1 WK, SUBCUTANEOUS, 44 MCG, 3 IN 1 WK, SUBCUTANEOUS
     Route: 058
     Dates: start: 20090514, end: 20100101
  2. REBIF [Suspect]
     Indication: RELAPSING-REMITTING MULTIPLE SCLEROSIS
     Dosage: 44 MCG, 3 IN 1 WK, SUBCUTANEOUS, 44 MCG, 3 IN 1 WK, SUBCUTANEOUS
     Route: 058
     Dates: start: 20100101
  3. REBIF [Suspect]
  4. DIOSMIN (DIOSMIN) [Concomitant]
  5. VENALOT (ESBERIVEN) [Concomitant]
  6. MONOCORDIL RETARD (ISOSORBIDE MONONITRATE) [Concomitant]
  7. PANTOPRAZOLE SODIUM [Concomitant]
  8. PURAN T4 (LEVOTHYROXINE SODIUM) [Concomitant]
  9. TEGRETOL [Concomitant]
  10. ICTUS (CARVEDILOL) [Concomitant]
  11. CLONAZEPAM [Concomitant]
  12. PLAVIX [Concomitant]
  13. SUSTRAT (PROPATYLNITRATE) [Concomitant]

REACTIONS (10)
  - BALANCE DISORDER [None]
  - BURNING SENSATION [None]
  - CONDITION AGGRAVATED [None]
  - CORONARY ARTERY OCCLUSION [None]
  - DEFAECATION URGENCY [None]
  - DYSPHAGIA [None]
  - FATIGUE [None]
  - IRRITABILITY [None]
  - MICTURITION URGENCY [None]
  - PRODUCT FORMULATION ISSUE [None]
